FAERS Safety Report 12589226 (Version 7)
Quarter: 2017Q2

REPORT INFORMATION
  Report Type: Spontaneous
  Country: US (occurrence: US)
  Receive Date: 20160725
  Receipt Date: 20170523
  Transmission Date: 20170830
  Serious: No
  Sender: FDA-Public Use
  Company Number: US-JNJFOC-20150109452

PATIENT
  Age: 44 Year
  Sex: Male

DRUGS (8)
  1. PREDNISONE. [Concomitant]
     Active Substance: PREDNISONE
  2. ACYCLOVIR. [Concomitant]
     Active Substance: ACYCLOVIR
  3. IMBRUVICA [Suspect]
     Active Substance: IBRUTINIB
     Indication: CHRONIC LYMPHOCYTIC LEUKAEMIA
     Route: 048
     Dates: start: 20141206
  4. R CHOP [Suspect]
     Active Substance: CYCLOPHOSPHAMIDE\DOXORUBICIN\PREDNISONE\RITUXIMAB\VINCRISTINE
     Indication: PRODUCT USED FOR UNKNOWN INDICATION
     Dosage: UNK
     Route: 065
  5. LEXAPRO [Concomitant]
     Active Substance: ESCITALOPRAM OXALATE
  6. ALLOPURINOL. [Concomitant]
     Active Substance: ALLOPURINOL
  7. BACTRIM DS [Concomitant]
     Active Substance: SULFAMETHOXAZOLE\TRIMETHOPRIM
  8. SUCRALFATE. [Concomitant]
     Active Substance: SUCRALFATE

REACTIONS (20)
  - Hepatosplenomegaly [Unknown]
  - Malaise [Not Recovered/Not Resolved]
  - Head discomfort [Unknown]
  - Platelet count abnormal [Unknown]
  - Ear congestion [Unknown]
  - Nausea [Not Recovered/Not Resolved]
  - Malaise [Unknown]
  - Headache [Unknown]
  - Vomiting [Unknown]
  - Haematocrit abnormal [Unknown]
  - Blood count abnormal [Not Recovered/Not Resolved]
  - Neutropenia [Not Recovered/Not Resolved]
  - Haemoglobin abnormal [Unknown]
  - Cough [Unknown]
  - Sinusitis bacterial [Unknown]
  - White blood cell count decreased [Recovering/Resolving]
  - Fatigue [Unknown]
  - Immunodeficiency [Unknown]
  - Asthenia [Unknown]
  - Adverse drug reaction [Not Recovered/Not Resolved]

NARRATIVE: CASE EVENT DATE: 201412
